FAERS Safety Report 6514692-4 (Version None)
Quarter: 2009Q4

REPORT INFORMATION
  Report Type: 
  Country: None (occurrence: None)
  Receive Date: 20091222
  Receipt Date: 20091222
  Transmission Date: 20100525
  Serious: Yes (Hospitalization)
  Sender: FDA-Public Use
  Company Number: None

PATIENT
  Age: 89 Year
  Sex: Male
  Weight: 68.7 kg

DRUGS (20)
  1. FENTANYL-100 [Suspect]
     Indication: PAIN
     Dosage: 750MG X2 TOPICALLY CHRONIC
     Route: 061
  2. HYDROMORPHONE [Suspect]
     Indication: PAIN
     Dosage: PRN ONCE PO CHRONIC
     Route: 048
  3. NYQUIL [Suspect]
     Dosage: ONCE PO
     Route: 048
  4. AMBIEN [Suspect]
     Indication: INSOMNIA
     Dosage: CHRONIC
  5. ARICEPT [Concomitant]
  6. AVODART [Concomitant]
  7. AMIODARONE HCL [Concomitant]
  8. CYMBALTA [Concomitant]
  9. LASIX [Concomitant]
  10. ZOCOR [Concomitant]
  11. POTASSIUM CHLORIDE [Concomitant]
  12. POLYETHYLENE GLYCOL [Concomitant]
  13. ASPIRIN [Concomitant]
  14. ACANITE [Concomitant]
  15. PRILOSEC [Concomitant]
  16. IRON TABLETS [Concomitant]
  17. VIT D [Concomitant]
  18. FLOMAX [Concomitant]
  19. GABYPENTIN [Concomitant]
  20. ZYPREXA [Concomitant]

REACTIONS (3)
  - BRONCHITIS [None]
  - DEHYDRATION [None]
  - MENTAL STATUS CHANGES [None]
